FAERS Safety Report 7991820-5 (Version None)
Quarter: 2011Q4

REPORT INFORMATION
  Report Type: 
  Country: None (occurrence: None)
  Receive Date: 20111219
  Receipt Date: 20111216
  Transmission Date: 20120403
  Serious: No
  Sender: FDA-Public Use
  Company Number: US-PFIZER INC-2011306886

PATIENT
  Sex: Female

DRUGS (1)
  1. MEDROL [Suspect]
     Dosage: 2 MG, UNK
     Route: 048

REACTIONS (4)
  - DYSGEUSIA [None]
  - HEADACHE [None]
  - HEARING IMPAIRED [None]
  - GLOSSODYNIA [None]
